FAERS Safety Report 8377750-8 (Version None)
Quarter: 2012Q2

REPORT INFORMATION
  Report Type: 
  Country: None (occurrence: None)
  Receive Date: 20120522
  Receipt Date: 20120516
  Transmission Date: 20120825
  Serious: Yes (Hospitalization)
  Sender: FDA-Public Use
  Company Number: ES-GLAXOSMITHKLINE-B0802843A

PATIENT
  Age: 61 Year
  Sex: Male

DRUGS (8)
  1. VOTRIENT [Suspect]
     Indication: RENAL CANCER
     Dosage: 800MG PER DAY
     Route: 065
     Dates: start: 20120418, end: 20120506
  2. ASPIRIN [Concomitant]
  3. FERROUS SULFATE TAB [Concomitant]
  4. ATENOLOL [Concomitant]
  5. METHYLPREDNISOLONE [Concomitant]
  6. ZOLPIDEM [Concomitant]
  7. PANTOPRAZOLE [Concomitant]
  8. ATORVASTATIN CALCIUM [Concomitant]

REACTIONS (5)
  - HAEMORRHAGE [None]
  - GRAND MAL CONVULSION [None]
  - DISSOCIATION [None]
  - HEADACHE [None]
  - NAUSEA [None]
